FAERS Safety Report 4509184-8 (Version None)
Quarter: 2004Q4

REPORT INFORMATION
  Report Type: 
  Country: None (occurrence: None)
  Receive Date: 20041025
  Receipt Date: 20030903
  Transmission Date: 20050328
  Serious: Yes (Hospitalization, Other)
  Sender: FDA-Public Use
  Company Number: NSADSS2002016013

PATIENT
  Age: 54 Year
  Sex: Female
  Weight: 92.5338 kg

DRUGS (11)
  1. REMICADE [Suspect]
     Indication: RHEUMATOID ARTHRITIS
     Dosage: 100 MG, INTRAVENOUS DRIP; SEE IMAGE
     Route: 041
     Dates: start: 20020220, end: 20020220
  2. REMICADE [Suspect]
     Indication: RHEUMATOID ARTHRITIS
     Dosage: 100 MG, INTRAVENOUS DRIP; SEE IMAGE
     Route: 041
     Dates: start: 20020306, end: 20020306
  3. REMICADE [Suspect]
     Indication: RHEUMATOID ARTHRITIS
     Dosage: 100 MG, INTRAVENOUS DRIP; SEE IMAGE
     Route: 041
     Dates: start: 20000901
  4. REMICADE [Suspect]
     Indication: RHEUMATOID ARTHRITIS
     Dosage: 100 MG, INTRAVENOUS DRIP; SEE IMAGE
     Route: 041
     Dates: start: 20001101
  5. IMURAN [Concomitant]
  6. VERAPAMIL [Concomitant]
  7. CLONIDINE [Concomitant]
  8. HYDROCHLOROTHIAZIDE [Concomitant]
  9. PREDNISONE [Concomitant]
  10. BENEDRYL (DIPHENHYDRAMINE HYDROCHLORIDE) [Concomitant]
  11. TYLENOL [Concomitant]

REACTIONS (3)
  - ANAPHYLACTIC REACTION [None]
  - SKIN LESION [None]
  - STOMATITIS [None]
